FAERS Safety Report 5625844-X (Version None)
Quarter: 2008Q1

REPORT INFORMATION
  Report Type: 
  Country: None (occurrence: None)
  Receive Date: 20080211
  Receipt Date: 20071219
  Transmission Date: 20080703
  Serious: Yes (Hospitalization)
  Sender: FDA-Public Use
  Company Number: 2007S1013671

PATIENT
  Age: 43 Year
  Sex: Male

DRUGS (5)
  1. PAROXEDURA (PAROXETINE HYDROCHLORIDE) [Suspect]
     Indication: OVERDOSE
     Dosage: 4000 MG; TABLET; ORAL; DAILY
     Route: 048
     Dates: start: 20071003, end: 20071003
  2. PAROXEDURA (PAROXETINE HYDROCHLORIDE) [Suspect]
     Indication: OVERDOSE
     Dosage: 4000 MG; TABLET; ORAL; DAILY
     Route: 048
     Dates: start: 20071003, end: 20071003
  3. PROMETHAZINE [Suspect]
     Indication: OVERDOSE
     Dosage: 25 MG, ORAL;
     Route: 048
     Dates: start: 20071003
  4. ALCOHOL /00002101/ (ETHANOL) [Suspect]
     Dosage: ORAL
     Route: 048
     Dates: start: 20071003, end: 20071003
  5. ALCOHOL /00002101/ (ETHANOL) [Suspect]
     Dosage: ORAL
     Route: 048
     Dates: start: 20071003, end: 20071003

REACTIONS (1)
  - INTENTIONAL OVERDOSE [None]
